FAERS Safety Report 5857295-7 (Version None)
Quarter: 2008Q3

REPORT INFORMATION
  Report Type: 
  Country: None (occurrence: None)
  Receive Date: 20080822
  Receipt Date: 20080812
  Transmission Date: 20090109
  Serious: Yes (Death)
  Sender: FDA-Public Use
  Company Number: 2008BI020973

PATIENT
  Age: 46 Year
  Sex: Male
  Weight: 86.637 kg

DRUGS (7)
  1. TYSABRI [Suspect]
     Indication: MULTIPLE SCLEROSIS
     Dosage: 300 MG; QM; IV
     Route: 042
     Dates: start: 20050201, end: 20050201
  2. TYSABRI [Suspect]
     Indication: MULTIPLE SCLEROSIS
     Dosage: 300 MG; QM; IV
     Route: 042
     Dates: start: 20070607
  3. SIMVASTATIN [Concomitant]
  4. ZINC [Concomitant]
  5. FLAX SEED OIL [Concomitant]
  6. MULTI-VITAMIN [Concomitant]
  7. ROZEREM [Concomitant]

REACTIONS (3)
  - CORONARY ARTERY OCCLUSION [None]
  - DRUG DOSE OMISSION [None]
  - DYSPNOEA [None]
